FAERS Safety Report 11234903 (Version 2)
Quarter: 2015Q3

REPORT INFORMATION
  Report Type: Spontaneous
  Country: JP (occurrence: JP)
  Receive Date: 20150702
  Receipt Date: 20150710
  Transmission Date: 20151125
  Serious: Yes (Other)
  Sender: FDA-Public Use
  Company Number: JP-ELI_LILLY_AND_COMPANY-JP201506006950

PATIENT
  Age: 21 Year
  Sex: Male

DRUGS (6)
  1. BIOFERMIN                          /01617201/ [Concomitant]
     Active Substance: BACILLUS SUBTILIS\LACTOBACILLUS ACIDOPHILUS\STREPTOCOCCUS FAECAIS
     Indication: PROPHYLAXIS
     Dosage: 1 G, TID
     Route: 048
     Dates: start: 20150526
  2. ADETPHOS [Concomitant]
     Active Substance: ADENOSINE TRIPHOSPHATE
     Indication: POST-TRAUMATIC NECK SYNDROME
     Dosage: 1 G, TID
     Route: 048
     Dates: start: 20150526
  3. ADETPHOS [Concomitant]
     Active Substance: ADENOSINE TRIPHOSPHATE
     Indication: LIGAMENT INJURY
  4. CYMBALTA [Suspect]
     Active Substance: DULOXETINE HYDROCHLORIDE
     Indication: FIBROMYALGIA
     Dosage: 20 MG, QD
     Route: 048
     Dates: start: 20150611, end: 20150613
  5. MYONAL                             /00287502/ [Concomitant]
     Active Substance: EPERISONE HYDROCHLORIDE
     Indication: FIBROMYALGIA
     Dosage: 50 MG, TID
     Route: 048
     Dates: start: 20150526
  6. METHYCOBAL [Concomitant]
     Active Substance: METHYLCOBALAMIN
     Indication: FIBROMYALGIA
     Dosage: 500 UG, TID
     Route: 048
     Dates: start: 20150526

REACTIONS (1)
  - Panic reaction [Recovered/Resolved]

NARRATIVE: CASE EVENT DATE: 20150613
